FAERS Safety Report 8979333 (Version 2)
Quarter: 2013Q1

REPORT INFORMATION
  Report Type: Spontaneous
  Country: US (occurrence: US)
  Receive Date: 20121221
  Receipt Date: 20130131
  Transmission Date: 20140127
  Serious: Yes (Other)
  Sender: FDA-Public Use
  Company Number: US-PFIZER INC-2012323744

PATIENT
  Age: 71 Year
  Sex: Female
  Weight: 78.01 kg

DRUGS (6)
  1. LIPITOR [Suspect]
     Indication: BLOOD CHOLESTEROL INCREASED
     Dosage: 10 MG, 1X/DAY
     Route: 048
     Dates: end: 201212
  2. VERAPAMIL [Concomitant]
     Indication: HYPERTENSION
     Dosage: 90 MG, 1X/DAY
  3. COZAAR [Concomitant]
     Indication: HYPERTENSION
     Dosage: 100 MG, 1X/DAY
  4. SPIRONOLACTONE [Concomitant]
     Indication: HYPERTENSION
     Dosage: 25 MG, 1X/DAY
  5. PREDNISONE [Concomitant]
     Indication: ARTHRITIS
     Dosage: UNK
  6. ARAVA [Concomitant]
     Indication: ARTHRITIS
     Dosage: 20 MG, UNK

REACTIONS (2)
  - Weight increased [Unknown]
  - Nasopharyngitis [Unknown]
